FAERS Safety Report 7055607-2 (Version None)
Quarter: 2010Q4

REPORT INFORMATION
  Report Type: 
  Country: None (occurrence: None)
  Receive Date: 20101021
  Receipt Date: 20101012
  Transmission Date: 20110411
  Serious: Yes (Hospitalization)
  Sender: FDA-Public Use
  Company Number: FR-NOVOPROD-316535

PATIENT
  Age: 62 Year
  Sex: Female

DRUGS (14)
  1. NOVONORM [Suspect]
     Indication: TYPE 2 DIABETES MELLITUS
     Dosage: 0.5 MG, QD
     Route: 048
     Dates: end: 20100627
  2. GLUCOPHAGE [Suspect]
     Indication: PRODUCT USED FOR UNKNOWN INDICATION
     Dosage: DAILY DOSE 3 G, FILMCOATED TABLET
     Route: 048
     Dates: end: 20100627
  3. CISPLATIN [Suspect]
     Indication: PRODUCT USED FOR UNKNOWN INDICATION
     Dosage: 200 MG, QD
     Route: 042
     Dates: start: 20100614, end: 20100614
  4. ARACYTINE [Suspect]
     Indication: PRODUCT USED FOR UNKNOWN INDICATION
     Dosage: 2X2 G
     Route: 042
     Dates: start: 20100614, end: 20100614
  5. MABTHERA [Suspect]
     Indication: PRODUCT USED FOR UNKNOWN INDICATION
     Dosage: 750 MG, QD
     Route: 042
     Dates: start: 20100614, end: 20100614
  6. ACTRAPID [Concomitant]
  7. LEVOTHYROXINE SODIUM [Concomitant]
  8. XYZAL [Concomitant]
  9. CYMBALTA [Concomitant]
  10. OGASTORO [Concomitant]
  11. VERATRAN [Concomitant]
  12. CARBOSYLANE [Concomitant]
  13. DIFFU K [Concomitant]
  14. PANTOPRAZOLE [Concomitant]

REACTIONS (2)
  - RENAL FAILURE ACUTE [None]
  - THROMBOCYTOPENIA [None]
